FAERS Safety Report 20495025 (Version 1)
Quarter: 2022Q1

REPORT INFORMATION
  Report Type: Spontaneous
  Country: DE (occurrence: DE)
  Receive Date: 20220221
  Receipt Date: 20220221
  Transmission Date: 20220423
  Serious: Yes (Other)
  Sender: FDA-Public Use
  Company Number: DE-NOVARTISPH-NVSC2022DE034632

PATIENT
  Age: 68 Year
  Sex: Female

DRUGS (3)
  1. CARBOPLATIN [Suspect]
     Active Substance: CARBOPLATIN
     Indication: Lung adenocarcinoma
     Dosage: UNK UNK, UNKNOWN (FIRST-LINE)
     Route: 065
     Dates: start: 201904
  2. PEMETREXED [Suspect]
     Active Substance: PEMETREXED
     Indication: Lung adenocarcinoma
     Dosage: UNK UNK, UNKNOWN (FIRST-LINE)
     Route: 065
     Dates: start: 201904
  3. PEMBROLIZUMAB [Suspect]
     Active Substance: PEMBROLIZUMAB
     Indication: Lung adenocarcinoma
     Dosage: UNK UNK, UNKNOWN (FIRST-LINE)
     Route: 065
     Dates: start: 201904

REACTIONS (1)
  - Malignant neoplasm progression [Unknown]
